FAERS Safety Report 8160564-1 (Version None)
Quarter: 2012Q1

REPORT INFORMATION
  Report Type: 
  Country: None (occurrence: None)
  Receive Date: 20120223
  Receipt Date: 20120213
  Transmission Date: 20120608
  Serious: Yes (Hospitalization, Other)
  Sender: FDA-Public Use
  Company Number: US-ELI_LILLY_AND_COMPANY-US201202003620

PATIENT
  Sex: Male

DRUGS (1)
  1. BYETTA [Suspect]
     Route: 058

REACTIONS (2)
  - CARDIAC DISORDER [None]
  - INCORRECT ROUTE OF DRUG ADMINISTRATION [None]
